FAERS Safety Report 8111594-7 (Version None)
Quarter: 2011Q4

REPORT INFORMATION
  Report Type: 
  Country: None (occurrence: None)
  Receive Date: 20111223
  Receipt Date: 20110913
  Transmission Date: 20120403
  Serious: Yes (Other)
  Sender: FDA-Public Use
  Company Number: PHEH2011US03727

PATIENT
  Sex: Female

DRUGS (5)
  1. ZETIA [Concomitant]
  2. ZOLOFT [Concomitant]
  3. MIRALAX [Concomitant]
  4. CLOZARIL [Suspect]
     Dosage: 300 MG, 1XDAY : 400 MG : 600 MG : 300 MG
  5. LAXATIVES (NO INGREDIENTS/SUBSTANCES) [Suspect]

REACTIONS (1)
  - CONSTIPATION [None]
